FAERS Safety Report 7777098-6 (Version None)
Quarter: 2011Q3

REPORT INFORMATION
  Report Type: 
  Country: None (occurrence: None)
  Receive Date: 20110926
  Receipt Date: 20110921
  Transmission Date: 20111222
  Serious: Yes (Other)
  Sender: FDA-Public Use
  Company Number: FR-BRISTOL-MYERS SQUIBB COMPANY-16090714

PATIENT
  Age: 74 Year
  Sex: Male

DRUGS (2)
  1. SPRYCEL [Suspect]
     Indication: CHRONIC MYELOID LEUKAEMIA
     Dates: start: 20071101
  2. DECAPEPTYL [Concomitant]
     Dosage: 1DF=1 INJECTION

REACTIONS (1)
  - PROSTATE CANCER [None]
